FAERS Safety Report 8925526 (Version 1)
Quarter: 2012Q4

REPORT INFORMATION
  Report Type: 
  Country: US (occurrence: US)
  Receive Date: 20121126
  Receipt Date: 20121126
  Transmission Date: 20130627
  Serious: No
  Sender: FDA-Public Use
  Company Number: US-VERTEX PHARMACEUTICAL INC.-2012-024861

PATIENT
  Age: 66 Year
  Sex: Female
  Weight: 82 kg

DRUGS (9)
  1. INCIVEK [Suspect]
     Indication: HEPATITIS C
     Dosage: 2 DF, tid
     Route: 048
     Dates: start: 20121105
  2. RIBAVIRIN [Suspect]
     Indication: HEPATITIS C
     Dosage: UNK, bid
     Route: 048
     Dates: start: 20121105
  3. PEGASYS [Suspect]
     Indication: HEPATITIS C
     Dosage: UNK, qw
     Route: 058
     Dates: start: 20121105
  4. PRAVASTATIN [Concomitant]
     Indication: BLOOD CHOLESTEROL
     Dosage: UNK
     Dates: start: 20121105
  5. METFORMIN [Concomitant]
     Indication: DIABETES MELLITUS
     Dosage: 500 mg, UNK
     Route: 048
  6. DIOVAN [Concomitant]
     Indication: HYPERTENSION
  7. NEXIUM                             /01479302/ [Concomitant]
  8. EYE DROPS [Concomitant]
     Indication: GLAUCOMA
  9. CALCIUM WITH VITAMIN D             /00944201/ [Concomitant]

REACTIONS (6)
  - Nasopharyngitis [Not Recovered/Not Resolved]
  - Productive cough [Not Recovered/Not Resolved]
  - Chills [Not Recovered/Not Resolved]
  - Fatigue [Not Recovered/Not Resolved]
  - Haemorrhoids [Not Recovered/Not Resolved]
  - Nausea [Not Recovered/Not Resolved]
